FAERS Safety Report 8212784-5 (Version None)
Quarter: 2012Q1

REPORT INFORMATION
  Report Type: 
  Country: None (occurrence: None)
  Receive Date: 20120315
  Receipt Date: 20120307
  Transmission Date: 20120608
  Serious: Yes (Life-Threatening, Other)
  Sender: FDA-Public Use
  Company Number: US-JNJFOC-20100701677

PATIENT
  Age: 42 Year
  Sex: Female
  Weight: 68.04 kg

DRUGS (4)
  1. NUCYNTA [Suspect]
     Route: 065
     Dates: start: 20090815
  2. NUCYNTA [Suspect]
     Route: 065
     Dates: end: 20091011
  3. CYMBALTA [Interacting]
     Indication: ILL-DEFINED DISORDER
     Route: 065
  4. NUCYNTA [Suspect]
     Indication: PAIN
     Route: 065

REACTIONS (14)
  - CONTUSION [None]
  - DEPRESSION [None]
  - STERNAL FRACTURE [None]
  - DIZZINESS [None]
  - MOVEMENT DISORDER [None]
  - CONFUSIONAL STATE [None]
  - MUSCLE TWITCHING [None]
  - DRUG INTERACTION [None]
  - DYSPNOEA [None]
  - AGITATION [None]
  - HALLUCINATION [None]
  - CHEST DISCOMFORT [None]
  - ROAD TRAFFIC ACCIDENT [None]
  - NAUSEA [None]
